FAERS Safety Report 8548208-8 (Version None)
Quarter: 2012Q3

REPORT INFORMATION
  Report Type: 
  Country: None (occurrence: None)
  Receive Date: 20120730
  Receipt Date: 20120718
  Transmission Date: 20120928
  Serious: Yes (Other)
  Sender: FDA-Public Use
  Company Number: US-BIOGENIDEC-2012BI026302

PATIENT
  Sex: Female

DRUGS (2)
  1. AVONEX [Suspect]
     Route: 030
     Dates: start: 20120304
  2. AVONEX [Suspect]
     Indication: MULTIPLE SCLEROSIS
     Route: 030
     Dates: start: 20060107, end: 20090106

REACTIONS (13)
  - SUICIDE ATTEMPT [None]
  - INFLUENZA LIKE ILLNESS [None]
  - MALAISE [None]
  - GASTRIC PERFORATION [None]
  - WEIGHT DECREASED [None]
  - PYREXIA [None]
  - DECREASED APPETITE [None]
  - JOINT INJURY [None]
  - DRUG INEFFECTIVE [None]
  - MUSCLE SPASMS [None]
  - ASTHENIA [None]
  - DEPRESSION [None]
  - INJECTION SITE PAIN [None]
